FAERS Safety Report 8420855-3 (Version None)
Quarter: 2012Q2

REPORT INFORMATION
  Report Type: 
  Country: None (occurrence: None)
  Receive Date: 20120608
  Receipt Date: 20120528
  Transmission Date: 20120825
  Serious: Yes (Other)
  Sender: FDA-Public Use
  Company Number: IT-AMGEN-ITASP2012034419

PATIENT
  Age: 43 Year
  Sex: Female

DRUGS (7)
  1. ESCITALOPRAM [Concomitant]
     Dosage: UNK
  2. XANAX [Concomitant]
     Dosage: UNK
  3. LIOTIR [Concomitant]
     Dosage: UNK
  4. DEPAKIN [Concomitant]
     Dosage: UNK
  5. MEDROL [Concomitant]
     Dosage: UNK
  6. DIFIX [Concomitant]
     Dosage: UNK
  7. ENBREL [Suspect]
     Indication: RHEUMATOID ARTHRITIS
     Dosage: 50 MG, WEEKLY
     Route: 058
     Dates: start: 20080502, end: 20120503

REACTIONS (1)
  - THYROID CANCER [None]
